FAERS Safety Report 4393734-9 (Version None)
Quarter: 2004Q3

REPORT INFORMATION
  Report Type: 
  Country: None (occurrence: None)
  Receive Date: 20040709
  Receipt Date: 20040626
  Transmission Date: 20050211
  Serious: Yes (Other)
  Sender: FDA-Public Use
  Company Number: GB-GLAXOSMITHKLINE-B0336934A

PATIENT

DRUGS (2)
  1. ROPINIROLE [Suspect]
     Route: 065
  2. CARBAMAZEPINE [Suspect]
     Route: 065

REACTIONS (2)
  - AORTIC VALVE DISEASE [None]
  - CARDIAC FAILURE CONGESTIVE [None]
